FAERS Safety Report 13199819 (Version 4)
Quarter: 2018Q1

REPORT INFORMATION
  Report Type: Report from Study
  Country: US (occurrence: US)
  Receive Date: 20170208
  Receipt Date: 20180223
  Transmission Date: 20180508
  Serious: Yes (Hospitalization)
  Sender: FDA-Public Use
  Company Number: US-ACTELION-A-NJ2015-129482

PATIENT
  Age: 68 Year
  Sex: Female
  Weight: 87.98 kg

DRUGS (7)
  1. COUMADIN [Concomitant]
     Active Substance: WARFARIN SODIUM
  2. WARFARIN [Concomitant]
     Active Substance: WARFARIN
  3. TRACLEER [Suspect]
     Active Substance: BOSENTAN
     Indication: PULMONARY ARTERIAL HYPERTENSION
     Dosage: 125 MG, BID
     Route: 048
     Dates: start: 20100201
  4. DILTIAZEM. [Concomitant]
     Active Substance: DILTIAZEM
  5. TRACLEER [Suspect]
     Active Substance: BOSENTAN
     Dosage: 125 MG, BID
     Route: 048
  6. ADEMPAS [Concomitant]
     Active Substance: RIOCIGUAT
     Dosage: 2 MG, TID
  7. AMLODIPINE [Concomitant]
     Active Substance: AMLODIPINE BESYLATE
     Dosage: X 30 DAYS

REACTIONS (22)
  - Musculoskeletal pain [Unknown]
  - Dyspepsia [Not Recovered/Not Resolved]
  - Fatigue [Not Recovered/Not Resolved]
  - Constipation [Unknown]
  - Cardiac failure congestive [Unknown]
  - Arthritis [Unknown]
  - Cough [Unknown]
  - Asthma [Unknown]
  - Flushing [Unknown]
  - Chronic obstructive pulmonary disease [Unknown]
  - Epistaxis [Recovering/Resolving]
  - Pain [Unknown]
  - Dyspnoea exertional [Recovering/Resolving]
  - Asthenia [Unknown]
  - Ocular hyperaemia [Unknown]
  - Nasal congestion [Unknown]
  - Dyspnoea [Unknown]
  - Neck pain [Unknown]
  - Back pain [Unknown]
  - Sinusitis [Unknown]
  - Abdominal distension [Unknown]
  - Malaise [Unknown]

NARRATIVE: CASE EVENT DATE: 20180211
